FAERS Safety Report 20824769 (Version 1)
Quarter: 2022Q2

REPORT INFORMATION
  Report Type: Spontaneous
  Country: US (occurrence: None)
  Receive Date: 20220512
  Receipt Date: 20220512
  Transmission Date: 20220721
  Serious: Yes (Disabling)
  Sender: FDA-Public Use
  Company Number: None

PATIENT
  Age: 54 Year
  Sex: Female
  Weight: 50.85 kg

DRUGS (19)
  1. LACOSAMIDE [Suspect]
     Active Substance: LACOSAMIDE
     Indication: Seizure
     Dosage: OTHER QUANTITY : 1 TABLET(S);?FREQUENCY : TWICE A DAY;?
     Route: 048
     Dates: start: 20211019
  2. ATIVAN [Concomitant]
     Active Substance: LORAZEPAM
  3. BENICAR [Concomitant]
     Active Substance: OLMESARTAN MEDOXOMIL
  4. CARVEDILOL [Concomitant]
     Active Substance: CARVEDILOL
  5. LEVOTHYROXINE [Concomitant]
     Active Substance: LEVOTHYROXINE
  6. LEXAPRO [Concomitant]
     Active Substance: ESCITALOPRAM OXALATE
  7. PANTOPRAZOLE [Concomitant]
     Active Substance: PANTOPRAZOLE
  8. ROSUVASTATIN [Concomitant]
     Active Substance: ROSUVASTATIN
  9. VIMPAT [Concomitant]
     Active Substance: LACOSAMIDE
  10. TRILEPTAL [Concomitant]
     Active Substance: OXCARBAZEPINE
  11. PEPPERMINT OIL [Concomitant]
     Active Substance: PEPPERMINT OIL
  12. VITAMINS [Concomitant]
     Active Substance: VITAMINS
  13. FISH OIL [Concomitant]
     Active Substance: FISH OIL
  14. HERBALS\TURMERIC [Concomitant]
     Active Substance: HERBALS\TURMERIC
  15. UBIQUINOL [Concomitant]
     Active Substance: UBIQUINOL
  16. CALCIUM CARBONATE [Concomitant]
     Active Substance: CALCIUM CARBONATE
  17. VITAMIN D [Concomitant]
     Active Substance: VITAMIN D NOS
  18. PROBIOTICS NOS [Concomitant]
     Active Substance: PROBIOTICS NOS
  19. THC edible and CBD [Concomitant]

REACTIONS (14)
  - Nausea [None]
  - Hypertension [None]
  - Paraesthesia [None]
  - Vision blurred [None]
  - Dizziness [None]
  - Depressed mood [None]
  - Anxiety [None]
  - Panic attack [None]
  - Anger [None]
  - Irritability [None]
  - Restlessness [None]
  - Insomnia [None]
  - Decreased appetite [None]
  - Weight decreased [None]

NARRATIVE: CASE EVENT DATE: 20211015
